FAERS Safety Report 21673366 (Version 3)
Quarter: 2022Q4

REPORT INFORMATION
  Report Type: Report from Study
  Country: US (occurrence: US)
  Receive Date: 20221202
  Receipt Date: 20221226
  Transmission Date: 20230113
  Serious: Yes (Death, Other)
  Sender: FDA-Public Use
  Company Number: US-GSKCCFUS-Case-01568820_AE-88668

PATIENT

DRUGS (2)
  1. BELANTAMAB MAFODOTIN [Suspect]
     Active Substance: BELANTAMAB MAFODOTIN
     Indication: Plasma cell myeloma
     Dosage: 200 MG
     Dates: start: 20220706, end: 20220727
  2. BELANTAMAB MAFODOTIN [Suspect]
     Active Substance: BELANTAMAB MAFODOTIN
     Dosage: 200 MG
     Dates: start: 20220727

REACTIONS (1)
  - Death [Fatal]

NARRATIVE: CASE EVENT DATE: 20221008
